FAERS Safety Report 9230255 (Version 1)
Quarter: 2013Q2

REPORT INFORMATION
  Report Type: Spontaneous
  Country: CA (occurrence: None)
  Receive Date: 20130411
  Receipt Date: 20130411
  Transmission Date: 20140414
  Serious: Yes (Other)
  Sender: FDA-Public Use
  Company Number: 2013AP004113

PATIENT
  Age: 63 Year
  Sex: Female

DRUGS (5)
  1. MONTELUKAST [Suspect]
     Indication: ASTHMA
     Route: 048
  2. APO-ESOMEPRAZOLE (ESOMEPRAZOLE MAGNESIUM) [Concomitant]
  3. APO-CLARITHROMYCIN (CLARITHROMYCIN) [Concomitant]
  4. SALBUTAMOL (SALBUTAMOL) [Concomitant]
  5. BETAMETHASONE (BETAMETHASONE) [Concomitant]

REACTIONS (4)
  - Hypersensitivity [None]
  - Lactose intolerance [None]
  - Nausea [None]
  - Gastrooesophageal reflux disease [None]
